FAERS Safety Report 20446619 (Version 1)
Quarter: 2022Q1

REPORT INFORMATION
  Report Type: Spontaneous
  Country: US (occurrence: US)
  Receive Date: 20220208
  Receipt Date: 20220208
  Transmission Date: 20220423
  Serious: No
  Sender: FDA-Public Use
  Company Number: US-IBSA PHARMA INC.-2021IBS000218

PATIENT

DRUGS (3)
  1. TIROSINT-SOL [Suspect]
     Active Substance: LEVOTHYROXINE SODIUM
     Indication: Thyroid hormone replacement therapy
     Dosage: UNK
     Route: 048
     Dates: start: 2020
  2. TIROSINT-SOL [Suspect]
     Active Substance: LEVOTHYROXINE SODIUM
     Dosage: 137 ?G, QD (TITRATED DOSE)
     Route: 048
     Dates: end: 2021
  3. TIROSINT-SOL [Suspect]
     Active Substance: LEVOTHYROXINE SODIUM
     Dosage: 137 ?G, QD
     Route: 048
     Dates: start: 2021

REACTIONS (4)
  - Constipation [Recovered/Resolved]
  - Blood thyroid stimulating hormone increased [Recovered/Resolved]
  - Fatigue [Recovered/Resolved]
  - Irritability [Recovered/Resolved]

NARRATIVE: CASE EVENT DATE: 20210101
